FAERS Safety Report 21816427 (Version 3)
Quarter: 2023Q1

REPORT INFORMATION
  Report Type: Report from Study
  Country: CA (occurrence: CA)
  Receive Date: 20230104
  Receipt Date: 20230201
  Transmission Date: 20230418
  Serious: Yes (Hospitalization, Other)
  Sender: FDA-Public Use
  Company Number: CA-JNJFOC-20220337626

PATIENT
  Age: 72 Year
  Sex: Male
  Weight: 90 kg

DRUGS (1)
  1. REMICADE [Suspect]
     Active Substance: INFLIXIMAB
     Indication: Crohn^s disease
     Dosage: PREVIOUSLY START DATE WAS PROVIDED 03-MAR-2021. FOLLOWED ON 18-NOV-2021. ANOTHER THERAPY START DATE
     Route: 041
     Dates: start: 20201111

REACTIONS (9)
  - Surgery [Unknown]
  - Haematological malignancy [Unknown]
  - Transfusion [Unknown]
  - Full blood count decreased [Unknown]
  - Mineral supplementation [Unknown]
  - Parkinson^s disease [Unknown]
  - Crohn^s disease [Unknown]
  - Infection [Unknown]
  - Illness [Unknown]

NARRATIVE: CASE EVENT DATE: 20220215
